FAERS Safety Report 19620126 (Version 1)
Quarter: 2021Q3

REPORT INFORMATION
  Report Type: Spontaneous
  Country: US (occurrence: US)
  Receive Date: 20210728
  Receipt Date: 20210728
  Transmission Date: 20211014
  Serious: Yes (Other)
  Sender: FDA-Public Use
  Company Number: US-ROCHE-2716592

PATIENT
  Sex: Female

DRUGS (5)
  1. TUKYSA [Suspect]
     Active Substance: TUCATINIB
     Indication: METASTASES TO CENTRAL NERVOUS SYSTEM
  2. TUKYSA [Suspect]
     Active Substance: TUCATINIB
     Indication: BRAIN NEOPLASM MALIGNANT
  3. TUKYSA [Suspect]
     Active Substance: TUCATINIB
     Indication: BREAST CANCER FEMALE
     Dosage: THERAPY ONGOING STATUS: ON HOLD FROM 24/NOV/2020
     Route: 065
     Dates: end: 20201124
  4. TUKYSA [Suspect]
     Active Substance: TUCATINIB
     Indication: BREAST CANCER METASTATIC
  5. CAPECITABINE. [Suspect]
     Active Substance: CAPECITABINE
     Indication: PRODUCT USED FOR UNKNOWN INDICATION
     Dosage: THERAPY ONGOING STATUS: ON HOLD FROM 24/NOV/2020
     Route: 048
     Dates: end: 20201124

REACTIONS (11)
  - Gastrointestinal pain [Unknown]
  - Oral mucosal blistering [Recovering/Resolving]
  - Stomatitis [Unknown]
  - Abdominal distension [Unknown]
  - Diarrhoea [Recovering/Resolving]
  - Constipation [Unknown]
  - Abdominal pain [Unknown]
  - Urinary tract infection [Unknown]
  - Skin exfoliation [Recovering/Resolving]
  - Alopecia [Unknown]
  - Micturition urgency [Unknown]
